FAERS Safety Report 5368203-X (Version None)
Quarter: 2007Q2

REPORT INFORMATION
  Report Type: 
  Country: None (occurrence: None)
  Receive Date: 20070625
  Receipt Date: 20070618
  Transmission Date: 20071010
  Serious: Yes (Other)
  Sender: FDA-Public Use
  Company Number: PHBS2007US10271

PATIENT
  Age: 6 Year
  Sex: Female

DRUGS (8)
  1. CYCLOSPORINE [Suspect]
     Indication: LIVER TRANSPLANT
     Route: 065
  2. CYCLOSPORINE [Suspect]
     Dosage: 9-12 MG/KG BID
     Route: 065
  3. MYCOPHENOLATE MOFETIL [Suspect]
     Indication: LIVER TRANSPLANT
     Route: 065
  4. METHYLPREDNISOLONE [Concomitant]
     Indication: LIVER TRANSPLANT
     Route: 065
  5. METHYLPREDNISOLONE [Concomitant]
     Dosage: 2 MG/KG/D
     Route: 065
  6. GANCICLOVIR [Suspect]
  7. SULFAMETHOXAZOLE W/TRIMETHOPRIM [Suspect]
     Route: 065
  8. NYSTATIN [Concomitant]
     Route: 065

REACTIONS (7)
  - APLASTIC ANAEMIA [None]
  - BONE MARROW FAILURE [None]
  - DRUG LEVEL DECREASED [None]
  - HAEMOGLOBIN DECREASED [None]
  - HYPERTENSION [None]
  - HYPERTRICHOSIS [None]
  - THROMBOCYTOPENIA [None]
